FAERS Safety Report 13092273 (Version 1)
Quarter: 2017Q1

REPORT INFORMATION
  Report Type: Spontaneous
  Country: US (occurrence: US)
  Receive Date: 20170105
  Receipt Date: 20170105
  Transmission Date: 20170428
  Serious: Yes (Hospitalization)
  Sender: FDA-Public Use
  Company Number: None

PATIENT
  Age: 80 Year
  Sex: Male
  Weight: 94.1 kg

DRUGS (4)
  1. MIRALAX [Concomitant]
     Active Substance: POLYETHYLENE GLYCOL 3350
  2. PERICOLACE [Concomitant]
  3. LEUPROLIDE ACETATE. [Suspect]
     Active Substance: LEUPROLIDE ACETATE
     Dates: end: 20161017
  4. CASODEX [Suspect]
     Active Substance: BICALUTAMIDE
     Dates: end: 20170101

REACTIONS (3)
  - Diarrhoea [None]
  - Dysstasia [None]
  - Dizziness [None]

NARRATIVE: CASE EVENT DATE: 20161231
